FAERS Safety Report 24440267 (Version 5)
Quarter: 2025Q4

REPORT INFORMATION
  Report Type: Report from Study
  Country: US (occurrence: US)
  Receive Date: 20241016
  Receipt Date: 20251021
  Transmission Date: 20260118
  Serious: Yes (Hospitalization, Other)
  Sender: UCB
  Company Number: US-UCBSA-2024039375

PATIENT
  Age: 54 Year

DRUGS (37)
  1. FENFLURAMINE [Suspect]
     Active Substance: FENFLURAMINE
     Indication: Focal dyscognitive seizures
     Dosage: 3.8 MILLILITER, 2X/DAY (BID)
  2. FENFLURAMINE [Suspect]
     Active Substance: FENFLURAMINE
     Indication: Lennox-Gastaut syndrome
     Dosage: 5.9 MILLILITER, 2X/DAY (BID)
  3. FENFLURAMINE [Suspect]
     Active Substance: FENFLURAMINE
     Dosage: 5.9 MILLILITER, 2X/DAY (BID)
  4. FENFLURAMINE [Suspect]
     Active Substance: FENFLURAMINE
     Dosage: 0.32 MILLIGRAM/KILOGRAM/DAY (26 MILLIGRAM/DAY)
  5. VIMPAT [Suspect]
     Active Substance: LACOSAMIDE
     Indication: Seizure
     Dosage: UNK
  6. LACOSAMIDE [Suspect]
     Active Substance: LACOSAMIDE
     Indication: Product used for unknown indication
     Dosage: UNK UNK, 2X/DAY (BID)
  7. NAYZILAM [Suspect]
     Active Substance: MIDAZOLAM
     Indication: Product used for unknown indication
     Dosage: UNK, AS NEEDED (PRN) (1 SPRAY)
  8. TYLENOL [Concomitant]
     Active Substance: ACETAMINOPHEN
     Indication: Pain
     Dosage: 650 MILLIGRAM (EV 4 HOURS)
  9. ABILIFY [Concomitant]
     Active Substance: ARIPIPRAZOLE
     Indication: Product used for unknown indication
     Dosage: 10 MILLIGRAM, ONCE DAILY (QD) (NIGHTLY)
  10. ABILIFY [Concomitant]
     Active Substance: ARIPIPRAZOLE
     Indication: Product used for unknown indication
     Dosage: 81 MILLIGRAM, ONCE DAILY (QD) (MORNING)
  11. LIPITOR [Concomitant]
     Active Substance: ATORVASTATIN CALCIUM
     Indication: Product used for unknown indication
     Dosage: 20 MILLIGRAM, ONCE DAILY (QD) (MORNING)
  12. CALCIUM [Concomitant]
     Active Substance: CALCIUM
     Indication: Product used for unknown indication
     Dosage: UNK, 2X/DAY (BID)
  13. CALCIUM CARBONATE [Concomitant]
     Active Substance: CALCIUM CARBONATE
     Indication: Product used for unknown indication
     Dosage: 750 MILLIGRAM, 4X/DAY (QID)
  14. EPIDIOLEX [Concomitant]
     Active Substance: CANNABIDIOL
     Indication: Product used for unknown indication
     Dosage: 1 MILLILITER
  15. EPIDIOLEX [Concomitant]
     Active Substance: CANNABIDIOL
     Dosage: 6.6 MILLILITER, 2X/DAY (BID)
  16. Murine ear [Concomitant]
     Indication: Product used for unknown indication
     Dosage: UNK
  17. VITAMIN D3 [Concomitant]
     Active Substance: CHOLECALCIFEROL
     Indication: Product used for unknown indication
     Dosage: UNK, ONCE DAILY (QD)
  18. CLOBAZAM [Concomitant]
     Active Substance: CLOBAZAM
     Indication: Product used for unknown indication
     Dosage: 10 MILLIGRAM, 2X/DAY (BID)
  19. DIAZEPAM [Concomitant]
     Active Substance: DIAZEPAM
     Indication: Product used for unknown indication
     Dosage: 15 MILLIGRAM
  20. docuu] [Concomitant]
     Indication: Product used for unknown indication
     Dosage: UNK, 2X/DAY (BID)
  21. CUVPOSA [Concomitant]
     Active Substance: GLYCOPYRROLATE
     Indication: Product used for unknown indication
     Dosage: 7 MILLILITER, 2X/DAY (BID) (1 MG/5 ML)
  22. Anazpas [Concomitant]
     Indication: Drooling
     Dosage: AS NEEDED (PRN)
  23. BONIVA [Concomitant]
     Active Substance: IBANDRONATE SODIUM
     Indication: Product used for unknown indication
     Dosage: 1 DOSAGE FORM, EV 30 DAYS
  24. NIZORAL [Concomitant]
     Active Substance: KETOCONAZOLE
     Indication: Product used for unknown indication
     Dosage: 2 PERCENT
  25. LAMICTAL [Concomitant]
     Active Substance: LAMOTRIGINE
     Indication: Product used for unknown indication
     Dosage: UNK (1 TABLET IN MORNING AND 2 TABLET IN NIGHT)
  26. ATIVAN [Concomitant]
     Active Substance: LORAZEPAM
     Indication: Insomnia
     Dosage: 1 DOSAGE FORM, ONCE DAILY (QD) (NIGHT)
  27. ATIVAN [Concomitant]
     Active Substance: LORAZEPAM
     Dosage: 2 MILLIGRAM, AS NEEDED (PRN)
  28. LUBIPROSTONE [Concomitant]
     Active Substance: LUBIPROSTONE
     Indication: Product used for unknown indication
     Dosage: 24 MICROGRAM, 2X/DAY (BID)
  29. tab-e-vit [Concomitant]
     Indication: Product used for unknown indication
     Dosage: UNK, ONCE DAILY (QD)
  30. GLYCOLAX [Concomitant]
     Active Substance: POLYETHYLENE GLYCOL 3350
     Indication: Product used for unknown indication
     Dosage: UNK, 2X/DAY (BID) (17 GRAM/ SCOOP)
  31. liquifilm [Concomitant]
     Indication: Product used for unknown indication
     Dosage: 1 DROP, AS NEEDED (PRN) (1.4 PERCENT OPHTHALMIC SOLUTION)
  32. belzem [Concomitant]
     Indication: Product used for unknown indication
     Dosage: UNK (2 TAB AT NOON AND 3 TAB AT BEDTIME)
  33. Scopolamide [Concomitant]
     Indication: Product used for unknown indication
     Dosage: 2 DOSAGE FORM, 2X/DAY (BID)
  34. TAMSULOSIN HYDROCHLORIDE [Concomitant]
     Active Substance: TAMSULOSIN HYDROCHLORIDE
     Indication: Product used for unknown indication
     Dosage: 1 DOSAGE FORM (DAILY)
  35. ZINC OXIDE [Concomitant]
     Active Substance: ZINC OXIDE
     Indication: Product used for unknown indication
     Dosage: UNK, 3X/DAY (TID) (16 PERCENT)
  36. xzolenfram [Concomitant]
     Indication: Product used for unknown indication
     Dosage: UNK (2 CAPSULE AT MORNING AND 4 CAPSULE AT BED TIME)
  37. ONFI [Concomitant]
     Active Substance: CLOBAZAM
     Indication: Product used for unknown indication
     Dosage: UNK

REACTIONS (9)
  - Seizure [Not Recovered/Not Resolved]
  - Asthenia [Not Recovered/Not Resolved]
  - Tonic convulsion [Unknown]
  - Vagal nerve stimulator implantation [Not Recovered/Not Resolved]
  - Tricuspid valve incompetence [Not Recovered/Not Resolved]
  - Left ventricular hypertrophy [Not Recovered/Not Resolved]
  - Right ventricular dilatation [Not Recovered/Not Resolved]
  - Pericardial calcification [Not Recovered/Not Resolved]
  - Wrong technique in product usage process [Unknown]
